FAERS Safety Report 4778757-X (Version None)
Quarter: 2005Q3

REPORT INFORMATION
  Report Type: 
  Country: None (occurrence: None)
  Receive Date: 20050926
  Receipt Date: 20050919
  Transmission Date: 20060218
  Serious: Yes (Hospitalization, Other)
  Sender: FDA-Public Use
  Company Number: PHBS2005US13794

PATIENT
  Age: 49 Year
  Sex: Male

DRUGS (2)
  1. IMATINIB [Suspect]
     Indication: CHRONIC MYELOID LEUKAEMIA
     Route: 065
  2. HYDROXYUREA [Concomitant]

REACTIONS (17)
  - ATELECTASIS [None]
  - CATHETER RELATED INFECTION [None]
  - CRANIOTOMY [None]
  - DEPRESSED LEVEL OF CONSCIOUSNESS [None]
  - EXTENSOR PLANTAR RESPONSE [None]
  - HEADACHE [None]
  - HYPOXIA [None]
  - INTUBATION [None]
  - LEUKOCYTOSIS [None]
  - NEUROLOGICAL SYMPTOM [None]
  - PLATELET COUNT DECREASED [None]
  - RESPIRATORY FAILURE [None]
  - STAPHYLOCOCCAL INFECTION [None]
  - STAPHYLOCOCCAL SEPSIS [None]
  - SUBDURAL HAEMATOMA [None]
  - SUBDURAL HAEMATOMA EVACUATION [None]
  - VOMITING [None]
